FAERS Safety Report 14525840 (Version 2)
Quarter: 2018Q1

REPORT INFORMATION
  Report Type: Spontaneous
  Country: JP (occurrence: JP)
  Receive Date: 20180213
  Receipt Date: 20180220
  Transmission Date: 20180509
  Serious: Yes (Other)
  Sender: FDA-Public Use
  Company Number: JP-PFIZER INC-2018057294

PATIENT
  Age: 53 Year
  Sex: Female

DRUGS (3)
  1. PACLITAXEL. [Suspect]
     Active Substance: PACLITAXEL
     Indication: BREAST CANCER
     Dosage: 90 MG/M2, CYCLIC (3 WEEKS ON 1 WEEK OFF)
  2. BEVACIZUMAB. [Concomitant]
     Active Substance: BEVACIZUMAB
     Indication: BREAST CANCER
     Dosage: 10 MG/KG, CYCLIC(4 COURSES) (BIWEEKLY)
  3. PACLITAXEL. [Suspect]
     Active Substance: PACLITAXEL
     Dosage: 90 MG/M2, CYCLIC (3 WEEKS ON 1 WEEK OFF)

REACTIONS (3)
  - Infected skin ulcer [Recovered/Resolved]
  - Pleurisy [Not Recovered/Not Resolved]
  - Pneumonia [Not Recovered/Not Resolved]
